FAERS Safety Report 6194734-9 (Version None)
Quarter: 2009Q2

REPORT INFORMATION
  Report Type: 
  Country: None (occurrence: None)
  Receive Date: 20090515
  Receipt Date: 20090515
  Transmission Date: 20091009
  Serious: No
  Sender: FDA-Public Use
  Company Number: None

PATIENT
  Age: 39 Year
  Sex: Female
  Weight: 67.586 kg

DRUGS (1)
  1. THYROLAR-0.25 [Suspect]
     Indication: HYPOTHYROIDISM
     Dosage: 1 DAILY PO
     Route: 048
     Dates: start: 20090504, end: 20090514

REACTIONS (3)
  - BONE PAIN [None]
  - GAIT DISTURBANCE [None]
  - MOVEMENT DISORDER [None]
